FAERS Safety Report 16568418 (Version 3)
Quarter: 2019Q3

REPORT INFORMATION
  Report Type: Spontaneous
  Country: AT (occurrence: AT)
  Receive Date: 20190712
  Receipt Date: 20190823
  Transmission Date: 20191004
  Serious: Yes (Disabling)
  Sender: FDA-Public Use
  Company Number: AT-ARBOR PHARMACEUTICALS, LLC-AT-2019ARB001051

PATIENT
  Age: 80 Year
  Sex: Male

DRUGS (1)
  1. TRIPTODUR [Suspect]
     Active Substance: TRIPTORELIN
     Indication: PROSTATE CANCER
     Dosage: SITE: ABDOMEN 11.25 MG,1 IN 3 M
     Route: 058
     Dates: start: 20190301

REACTIONS (3)
  - Abdominal pain [Recovered/Resolved]
  - Circulatory collapse [Recovered/Resolved]
  - Injection site pain [Recovered/Resolved]

NARRATIVE: CASE EVENT DATE: 20190604
